FAERS Safety Report 22230474 (Version 6)
Quarter: 2023Q4

REPORT INFORMATION
  Report Type: Report from Study
  Country: US (occurrence: US)
  Receive Date: 20230419
  Receipt Date: 20231019
  Transmission Date: 20240110
  Serious: Yes (Hospitalization, Other)
  Sender: FDA-Public Use
  Company Number: US-ABBVIE-4733510

PATIENT
  Age: 76 Year
  Sex: Female

DRUGS (2)
  1. IMBRUVICA [Suspect]
     Active Substance: IBRUTINIB
     Indication: Waldenstrom^s macroglobulinaemia
     Dosage: ON IMBRUVICA FOR 5 YEARS
     Route: 048
     Dates: start: 2018
  2. IMBRUVICA [Suspect]
     Active Substance: IBRUTINIB
     Indication: Waldenstrom^s macroglobulinaemia
     Route: 048

REACTIONS (5)
  - Cardiac failure congestive [Not Recovered/Not Resolved]
  - Off label use [Unknown]
  - Pneumonia escherichia [Unknown]
  - Atrial fibrillation [Unknown]
  - Pneumonia [Unknown]

NARRATIVE: CASE EVENT DATE: 20230301
